FAERS Safety Report 9376232 (Version 2)
Quarter: 2013Q3

REPORT INFORMATION
  Report Type: Spontaneous
  Country: UA (occurrence: UA)
  Receive Date: 20130701
  Receipt Date: 20130709
  Transmission Date: 20140515
  Serious: Yes (Other)
  Sender: FDA-Public Use
  Company Number: PHHY2013UA065708

PATIENT
  Age: 65 Year
  Sex: Female

DRUGS (5)
  1. AMLODIPINE [Suspect]
     Indication: HYPERTENSION
     Dosage: 10 MG, DAILY
  2. VALSARTAN [Suspect]
     Indication: HYPERTENSION
     Dosage: 160 MG, DAILY
  3. TORASEMIDE [Concomitant]
     Indication: HYPERTENSION
  4. LERCANIDIPINE [Concomitant]
     Indication: HYPERTENSION
  5. BISOPROLOL [Concomitant]

REACTIONS (4)
  - Renal failure [Unknown]
  - Oedema peripheral [Unknown]
  - Blood creatinine increased [Recovering/Resolving]
  - General physical health deterioration [Unknown]
